FAERS Safety Report 13513870 (Version 1)
Quarter: 2017Q2

REPORT INFORMATION
  Report Type: Spontaneous
  Country: DE (occurrence: DE)
  Receive Date: 20170504
  Receipt Date: 20170504
  Transmission Date: 20170830
  Serious: Yes (Death)
  Sender: FDA-Public Use
  Company Number: DE-BAYER-2017-081420

PATIENT
  Age: 40 Year
  Sex: Male

DRUGS (6)
  1. METAMIZOL [Concomitant]
     Active Substance: METAMIZOLE SODIUM
     Indication: PAIN
  2. IBUPROFEN. [Suspect]
     Active Substance: IBUPROFEN
     Indication: PNEUMONIA
     Dosage: 1800 MG, QD
  3. METAMIZOL [Concomitant]
     Active Substance: METAMIZOLE SODIUM
     Indication: PNEUMONIA
  4. CIPROBAY [Suspect]
     Active Substance: CIPROFLOXACIN
     Indication: PLEURISY
  5. IBUPROFEN. [Suspect]
     Active Substance: IBUPROFEN
     Indication: PAIN
     Dosage: 1200 MG, QD
  6. CIPROBAY [Suspect]
     Active Substance: CIPROFLOXACIN
     Indication: PNEUMONIA
     Route: 042

REACTIONS (3)
  - Toxicity to various agents [Fatal]
  - Postmortem blood drug level increased [Fatal]
  - Overdose [Fatal]
